FAERS Safety Report 6143843-9 (Version None)
Quarter: 2009Q2

REPORT INFORMATION
  Report Type: 
  Country: None (occurrence: None)
  Receive Date: 20090403
  Receipt Date: 20090324
  Transmission Date: 20091009
  Serious: Yes (Death)
  Sender: FDA-Public Use
  Company Number: BR-MERCK-0903USA05623

PATIENT
  Age: 33 Year
  Sex: Female

DRUGS (4)
  1. CRIXIVAN [Suspect]
     Indication: ANTIFUNGAL PROPHYLAXIS
     Route: 065
     Dates: start: 19990101, end: 20000601
  2. ZIDOVUDINE [Concomitant]
     Indication: ANTIFUNGAL PROPHYLAXIS
     Route: 065
     Dates: start: 19990101, end: 20000101
  3. LAMIVUDINE [Concomitant]
     Indication: ANTIFUNGAL PROPHYLAXIS
     Route: 065
     Dates: start: 19990101
  4. SULFAMETHOXAZOLE AND TRIMETHOPRIM [Concomitant]
     Indication: ANTIFUNGAL PROPHYLAXIS
     Route: 065
     Dates: start: 19990101, end: 20000101

REACTIONS (19)
  - ANAEMIA [None]
  - BACTERIAL INFECTION [None]
  - BRONCHOPULMONARY ASPERGILLOSIS [None]
  - CHEST PAIN [None]
  - CYTOMEGALOVIRUS INFECTION [None]
  - DEATH [None]
  - INTERVERTEBRAL DISC DEGENERATION [None]
  - LEUKOPENIA [None]
  - OESOPHAGEAL CANDIDIASIS [None]
  - ORAL CANDIDIASIS [None]
  - PARAESTHESIA [None]
  - PARAPARESIS [None]
  - PNEUMONIA [None]
  - PRODUCTIVE COUGH [None]
  - SINUSITIS [None]
  - SPUTUM CULTURE POSITIVE [None]
  - TACHYPNOEA [None]
  - TUBERCULOSIS [None]
  - URINARY INCONTINENCE [None]
